FAERS Safety Report 5213771-1 (Version None)
Quarter: 2007Q1

REPORT INFORMATION
  Report Type: 
  Country: None (occurrence: None)
  Receive Date: 20070119
  Receipt Date: 20070109
  Transmission Date: 20070707
  Serious: Yes (Life-Threatening, Hospitalization)
  Sender: FDA-Public Use
  Company Number: NL-PFIZER INC-2006140963

PATIENT
  Sex: Male

DRUGS (4)
  1. ZITHROMAX [Suspect]
     Indication: RESPIRATORY TRACT INFECTION
     Route: 048
  2. DEPAKENE [Concomitant]
  3. LORMETAZEPAM [Concomitant]
     Dates: start: 20060101
  4. NEORAL [Interacting]
     Dates: start: 20060101

REACTIONS (1)
  - MYOCARDIAL INFARCTION [None]
